FAERS Safety Report 18069732 (Version 1)
Quarter: 2020Q3

REPORT INFORMATION
  Report Type: Other
  Country: US (occurrence: US)
  Receive Date: 20200727
  Receipt Date: 20200727
  Transmission Date: 20201103
  Serious: Yes (Other)
  Sender: FDA-Public Use
  Company Number: US-ALEMBIC PHARMACUETICALS LIMITED-2020SCAL000312

PATIENT

DRUGS (2)
  1. LAMOTRIGINE. [Suspect]
     Active Substance: LAMOTRIGINE
     Dosage: 200 MG
     Route: 065
  2. LAMOTRIGINE. [Suspect]
     Active Substance: LAMOTRIGINE
     Indication: PRODUCT USED FOR UNKNOWN INDICATION
     Dosage: 200 MG
     Route: 065

REACTIONS (10)
  - Cerebral disorder [Unknown]
  - Product substitution issue [Unknown]
  - Drug ineffective [Unknown]
  - Suspected product quality issue [Unknown]
  - Headache [Unknown]
  - Chest discomfort [Unknown]
  - Arrhythmia [Unknown]
  - Cardiac disorder [Unknown]
  - Illness [Unknown]
  - Chest pain [Unknown]
